FAERS Safety Report 13966833 (Version 1)
Quarter: 2017Q3

REPORT INFORMATION
  Report Type: Spontaneous
  Country: US (occurrence: US)
  Receive Date: 20170914
  Receipt Date: 20170914
  Transmission Date: 20171128
  Serious: Yes (Disabling)
  Sender: FDA-Public Use
  Company Number: None

PATIENT
  Age: 57 Year
  Sex: Female
  Weight: 67.5 kg

DRUGS (2)
  1. PROCHLORPERZINE [Suspect]
     Active Substance: PROCHLORPERAZINE
     Indication: MIGRAINE
     Dates: start: 20170627, end: 20170706
  2. PROCHLORPERZINE [Suspect]
     Active Substance: PROCHLORPERAZINE
     Indication: ANXIETY
     Dates: start: 20170627, end: 20170706

REACTIONS (1)
  - Adverse drug reaction [None]

NARRATIVE: CASE EVENT DATE: 20170627
